FAERS Safety Report 7077144-1 (Version None)
Quarter: 2010Q4

REPORT INFORMATION
  Report Type: 
  Country: None (occurrence: None)
  Receive Date: 20101101
  Receipt Date: 20101026
  Transmission Date: 20110411
  Serious: Yes (Hospitalization)
  Sender: FDA-Public Use
  Company Number: A0888790A

PATIENT
  Age: 58 Year
  Sex: Female

DRUGS (4)
  1. CARVEDILOL [Suspect]
     Route: 048
     Dates: start: 20060301, end: 20090101
  2. INSPRA [Concomitant]
  3. UNSPECIFIED MEDICATION [Concomitant]
  4. COUMADIN [Concomitant]

REACTIONS (7)
  - BLISTER [None]
  - CARDIAC DISORDER [None]
  - DRUG INEFFECTIVE [None]
  - RASH [None]
  - THERMAL BURN [None]
  - THROAT TIGHTNESS [None]
  - TONGUE BLISTERING [None]
